FAERS Safety Report 13111368 (Version 1)
Quarter: 2017Q1

REPORT INFORMATION
  Report Type: Spontaneous
  Country: US (occurrence: US)
  Receive Date: 20170112
  Receipt Date: 20170112
  Transmission Date: 20170428
  Serious: No
  Sender: FDA-Public Use
  Company Number: GXBR2016US002245

PATIENT
  Age: 53 Year
  Sex: Female

DRUGS (2)
  1. BUPROPION HCL TABLETS [Suspect]
     Active Substance: BUPROPION HYDROCHLORIDE
     Indication: DEPRESSION
     Dosage: 100 MG, QD
     Route: 048
     Dates: start: 2015
  2. BUPROPION HCL TABLETS [Suspect]
     Active Substance: BUPROPION HYDROCHLORIDE
     Indication: ANXIETY

REACTIONS (1)
  - Drug ineffective [Unknown]
